FAERS Safety Report 5676225-4 (Version None)
Quarter: 2008Q1

REPORT INFORMATION
  Report Type: 
  Country: None (occurrence: None)
  Receive Date: 20080321
  Receipt Date: 20080313
  Transmission Date: 20080703
  Serious: Yes (Hospitalization)
  Sender: FDA-Public Use
  Company Number: US-BOEHRINGER INGELHEIM GMBH, GERMANY-2008-BP-03977BP

PATIENT
  Sex: Female

DRUGS (1)
  1. SPIRIVA [Suspect]
     Dates: start: 20080220, end: 20080305

REACTIONS (4)
  - DYSPNOEA [None]
  - PNEUMONIA [None]
  - SWOLLEN TONGUE [None]
  - TONGUE DISCOLOURATION [None]
